FAERS Safety Report 7564168-0 (Version None)
Quarter: 2011Q2

REPORT INFORMATION
  Report Type: 
  Country: None (occurrence: None)
  Receive Date: 20110622
  Receipt Date: 20110621
  Transmission Date: 20111010
  Serious: Yes (Hospitalization)
  Sender: FDA-Public Use
  Company Number: US-UCBSA-035828

PATIENT
  Sex: Female
  Weight: 117 kg

DRUGS (14)
  1. JANUVIA [Concomitant]
     Indication: DIABETES MELLITUS
     Route: 048
     Dates: start: 20100101
  2. ISONIAZID [Concomitant]
     Indication: PROPHYLAXIS
     Route: 048
     Dates: start: 20100101
  3. CITALOPRAM HYDROBROMIDE [Concomitant]
     Indication: DEPRESSION
     Route: 048
     Dates: start: 20100101
  4. HYDROMORPHONE HCL [Concomitant]
     Indication: PAIN
     Route: 048
     Dates: start: 20110101
  5. RANITIDINE [Concomitant]
     Indication: GASTROOESOPHAGEAL REFLUX DISEASE
     Route: 048
     Dates: start: 20100101
  6. DIPHENHYDRAMINE HCL [Concomitant]
     Indication: PRURITUS
     Route: 048
     Dates: start: 20100101
  7. TIZANIDINE HCL [Concomitant]
     Indication: MUSCLE SPASMS
     Route: 048
     Dates: start: 20100101
  8. PREDNISONE [Concomitant]
     Indication: RHEUMATOID ARTHRITIS
     Route: 048
     Dates: start: 20100101
  9. METFORMIN HCL [Concomitant]
     Indication: DIABETES MELLITUS
     Route: 048
     Dates: start: 20100101
  10. CIMZIA [Suspect]
     Indication: RHEUMATOID ARTHRITIS
     Dosage: 200 MG EVERY 2 WEEKS
     Route: 058
     Dates: start: 20101124
  11. LISINOPRIL [Concomitant]
     Indication: HYPERTENSION
     Route: 048
     Dates: start: 20100101
  12. LEFLUNOMIDE [Concomitant]
     Indication: RHEUMATOID ARTHRITIS
     Route: 048
     Dates: start: 20100101
  13. GABAPENTIN [Concomitant]
     Indication: INSOMNIA
     Dosage: 300 MG AT BEDTIME
     Route: 048
     Dates: start: 20110101
  14. PROPRANOLOL [Suspect]
     Indication: TREMOR
     Dosage: STARTED AT 1 TABLET DAILY, ENDED WITH 3 TABLETS DAILY
     Route: 048
     Dates: end: 20110606

REACTIONS (2)
  - DEHYDRATION [None]
  - RHEUMATOID ARTHRITIS [None]
